FAERS Safety Report 13029891 (Version 1)
Quarter: 2016Q4

REPORT INFORMATION
  Report Type: Spontaneous
  Country: DK (occurrence: DK)
  Receive Date: 20161215
  Receipt Date: 20161215
  Transmission Date: 20170207
  Serious: Yes (Other)
  Sender: FDA-Public Use
  Company Number: DK-JNJFOC-20161207224

PATIENT
  Age: 73 Year
  Sex: Female

DRUGS (5)
  1. TAXOL [Suspect]
     Active Substance: PACLITAXEL
     Indication: OVARIAN CANCER STAGE IV
     Route: 065
     Dates: start: 20120402
  2. CAELYX [Suspect]
     Active Substance: DOXORUBICIN HYDROCHLORIDE
     Indication: OVARIAN CANCER STAGE IV
     Route: 065
     Dates: start: 20120402, end: 20120821
  3. CAELYX [Suspect]
     Active Substance: DOXORUBICIN HYDROCHLORIDE
     Indication: OVARIAN CANCER STAGE IV
     Route: 065
     Dates: start: 20130827
  4. CARBOPLATIN ACTAVIS [Suspect]
     Active Substance: CARBOPLATIN
     Indication: OVARIAN CANCER STAGE IV
     Route: 065
     Dates: start: 20160402
  5. CARBOPLATIN ACTAVIS [Suspect]
     Active Substance: CARBOPLATIN
     Indication: OVARIAN CANCER STAGE IV
     Route: 065
     Dates: start: 20120402

REACTIONS (12)
  - Neuralgia [Unknown]
  - Nausea [Unknown]
  - Burning sensation [Unknown]
  - Arthralgia [Unknown]
  - Hypoaesthesia [Unknown]
  - Recurrent cancer [Unknown]
  - Fluid retention [Unknown]
  - Memory impairment [Unknown]
  - Myalgia [Unknown]
  - Hyperhidrosis [Unknown]
  - Tremor [Unknown]
  - Pulmonary thrombosis [Unknown]

NARRATIVE: CASE EVENT DATE: 20131119
